FAERS Safety Report 9290536 (Version 1)
Quarter: 2013Q2

REPORT INFORMATION
  Report Type: Spontaneous
  Country: US (occurrence: US)
  Receive Date: 20130514
  Receipt Date: 20130514
  Transmission Date: 20140414
  Serious: Yes (Hospitalization)
  Sender: FDA-Public Use
  Company Number: US-BRACCO-008626

PATIENT
  Age: 80 Year
  Sex: Male
  Weight: 70 kg

DRUGS (2)
  1. PROHANCE [Suspect]
     Indication: NUCLEAR MAGNETIC RESONANCE IMAGING
     Route: 042
     Dates: start: 20120917, end: 20120917
  2. PROHANCE [Suspect]
     Indication: PROSTATE CANCER
     Route: 042
     Dates: start: 20120917, end: 20120917

REACTIONS (1)
  - Hypersensitivity [Recovered/Resolved]
